FAERS Safety Report 10699004 (Version 3)
Quarter: 2015Q1

REPORT INFORMATION
  Report Type: Spontaneous
  Country: US (occurrence: US)
  Receive Date: 20150108
  Receipt Date: 20150209
  Transmission Date: 20150721
  Serious: No
  Sender: FDA-Public Use
  Company Number: US-GLAXOSMITHKLINE-A1067590A

PATIENT
  Age: 63 Year
  Sex: Female

DRUGS (2)
  1. REQUIP [Suspect]
     Active Substance: ROPINIROLE HYDROCHLORIDE
     Indication: RESTLESS LEGS SYNDROME
     Dosage: UNK
  2. REQUIP [Suspect]
     Active Substance: ROPINIROLE HYDROCHLORIDE
     Indication: NERVOUS SYSTEM DISORDER
     Dosage: 2 MG TABLET AT UNKNOWN DOSING
     Route: 065
     Dates: start: 20110512

REACTIONS (7)
  - Drug administration error [Unknown]
  - Suture removal [Recovered/Resolved]
  - Biopsy skin [Recovered/Resolved]
  - Neoplasm skin [Unknown]
  - Nasopharyngitis [Unknown]
  - Facial operation [Recovered/Resolved]
  - Bronchitis [Unknown]

NARRATIVE: CASE EVENT DATE: 20141225
